FAERS Safety Report 7065596-2 (Version None)
Quarter: 2010Q4

REPORT INFORMATION
  Report Type: 
  Country: None (occurrence: None)
  Receive Date: 20101027
  Receipt Date: 20101020
  Transmission Date: 20110411
  Serious: Yes (Life-Threatening, Hospitalization)
  Sender: FDA-Public Use
  Company Number: US-GILEAD-2010-0032582

PATIENT
  Sex: Female
  Weight: 83.99 kg

DRUGS (14)
  1. LETAIRIS [Suspect]
     Indication: PULMONARY ARTERIAL HYPERTENSION
     Route: 048
     Dates: start: 20080205
  2. REVATIO [Concomitant]
     Indication: PULMONARY HYPERTENSION
  3. WARFARIN SODIUM [Concomitant]
     Indication: VENOUS THROMBOSIS
  4. ASPIRIN [Concomitant]
     Indication: THROMBOSIS PROPHYLAXIS
  5. PLAVIX [Concomitant]
     Indication: THROMBOSIS PROPHYLAXIS
  6. LASIX [Concomitant]
     Indication: HYPERTENSION
  7. SPIRONOLACTONE [Concomitant]
     Indication: HYPERTENSION
  8. DIOVAN [Concomitant]
     Indication: HYPERTENSION
  9. JANUVIA [Concomitant]
     Indication: TYPE 2 DIABETES MELLITUS
  10. LANTUS [Concomitant]
     Indication: TYPE 2 DIABETES MELLITUS
  11. LIPITOR [Concomitant]
     Indication: HYPERLIPIDAEMIA
  12. SYNTHROID [Concomitant]
     Indication: HYPOTHYROIDISM
  13. VESICARE [Concomitant]
     Indication: HYPERTONIC BLADDER
  14. VITAMIN D [Concomitant]
     Indication: VITAMIN D DEFICIENCY

REACTIONS (1)
  - MYOCARDIAL INFARCTION [None]
